FAERS Safety Report 9210758 (Version 1)
Quarter: 2013Q2

REPORT INFORMATION
  Report Type: Spontaneous
  Country: FR (occurrence: FR)
  Receive Date: 20130404
  Receipt Date: 20130404
  Transmission Date: 20140414
  Serious: Yes (Hospitalization)
  Sender: FDA-Public Use
  Company Number: FR-VIIV HEALTHCARE LIMITED-B0877718A

PATIENT
  Age: 50 Year
  Sex: Male

DRUGS (7)
  1. KIVEXA [Suspect]
     Indication: HIV INFECTION
     Route: 048
     Dates: start: 20130121, end: 20130205
  2. VIRAMUNE [Concomitant]
     Indication: HIV INFECTION
     Route: 048
  3. SUBUTEX [Concomitant]
     Indication: DRUG DEPENDENCE
     Dosage: 10MG PER DAY
     Route: 048
  4. LAROXYL [Concomitant]
     Indication: DEPRESSION
     Dosage: 25MG TWICE PER DAY
     Route: 048
  5. STILNOX [Concomitant]
     Indication: INSOMNIA
     Dosage: 1UNIT PER DAY
     Route: 048
  6. MOPRAL [Concomitant]
     Route: 048
  7. TRUVADA [Concomitant]
     Dates: end: 201301

REACTIONS (10)
  - Acute coronary syndrome [Recovered/Resolved with Sequelae]
  - Chest pain [Recovered/Resolved with Sequelae]
  - Chest discomfort [Unknown]
  - Headache [Unknown]
  - Cough [Unknown]
  - Flushing [Unknown]
  - Coronary artery stenosis [Unknown]
  - Arteriogram coronary abnormal [Unknown]
  - Cardiac enzymes increased [Unknown]
  - Troponin increased [Unknown]
